FAERS Safety Report 9500175 (Version 1)
Quarter: 2013Q3

REPORT INFORMATION
  Report Type: Spontaneous
  Country: US (occurrence: None)
  Receive Date: 20130903
  Receipt Date: 20130903
  Transmission Date: 20140515
  Serious: Yes (Other)
  Sender: FDA-Public Use
  Company Number: US-DEXPHARM-20130525

PATIENT
  Sex: Male
  Weight: 86.17 kg

DRUGS (1)
  1. OMEPRAZOLE [Suspect]
     Indication: DYSPEPSIA
     Dosage: 20 MG OCNE AS NECESSARY, ORAL
     Route: 048
     Dates: start: 201307, end: 20130812

REACTIONS (9)
  - Palpitations [None]
  - Fall [None]
  - Loss of consciousness [None]
  - Unresponsive to stimuli [None]
  - Somnolence [None]
  - Hypotension [None]
  - Pallor [None]
  - Dizziness postural [None]
  - Erythema [None]
